FAERS Safety Report 6011737-5 (Version None)
Quarter: 2008Q4

REPORT INFORMATION
  Report Type: 
  Country: None (occurrence: None)
  Receive Date: 20081218
  Receipt Date: 20070703
  Transmission Date: 20090506
  Serious: Yes (Hospitalization)
  Sender: FDA-Public Use
  Company Number: JP-ROCHE-492116

PATIENT
  Sex: Male
  Weight: 29 kg

DRUGS (2)
  1. TAMIFLU [Suspect]
     Dosage: FORM: DRY SYRUP.
     Route: 048
     Dates: start: 20070331, end: 20070331
  2. DIAPP [Concomitant]
     Route: 054
     Dates: start: 20070331, end: 20070331

REACTIONS (1)
  - ALTERED STATE OF CONSCIOUSNESS [None]
